FAERS Safety Report 4440490-1 (Version None)
Quarter: 2004Q3

REPORT INFORMATION
  Report Type: 
  Country: None (occurrence: None)
  Receive Date: 20040826
  Receipt Date: 20040119
  Transmission Date: 20050211
  Serious: Yes (Hospitalization)
  Sender: FDA-Public Use
  Company Number: 2004-06572

PATIENT
  Age: 34 Year
  Sex: Female

DRUGS (3)
  1. CIDOFOVIR (CIDOFOVIR) [Suspect]
     Indication: DRUG RESISTANCE
     Dosage: 3 MG/KG, ONCE A WEEK, INTRAVENOUS
     Route: 042
     Dates: start: 20031209
  2. CIDOFOVIR (CIDOFOVIR) [Suspect]
     Indication: HERPES VIRUS INFECTION
     Dosage: 3 MG/KG, ONCE A WEEK, INTRAVENOUS
     Route: 042
     Dates: start: 20031209
  3. PROBENECID [Concomitant]

REACTIONS (1)
  - RENAL FAILURE ACUTE [None]
